FAERS Safety Report 8905940 (Version 2)
Quarter: 2013Q1

REPORT INFORMATION
  Report Type: Spontaneous
  Country: US (occurrence: US)
  Receive Date: 20121109
  Receipt Date: 20130108
  Transmission Date: 20140127
  Serious: Yes (Hospitalization)
  Sender: FDA-Public Use
  Company Number: US-GLAXOSMITHKLINE-A0818253A

PATIENT
  Sex: Female

DRUGS (1)
  1. AVANDIA [Suspect]
     Indication: DIABETES MELLITUS
     Dosage: 4MG PER DAY
     Route: 048
     Dates: start: 2005

REACTIONS (6)
  - Angina pectoris [Unknown]
  - Cardiac failure congestive [Unknown]
  - Hypertension [Unknown]
  - Blood glucose abnormal [Unknown]
  - Acute coronary syndrome [Not Recovered/Not Resolved]
  - Atrial fibrillation [Unknown]
